FAERS Safety Report 4279020-6 (Version None)
Quarter: 2004Q1

REPORT INFORMATION
  Report Type: 
  Country: None (occurrence: None)
  Receive Date: 20040122
  Receipt Date: 20040107
  Transmission Date: 20041129
  Serious: Yes (Death)
  Sender: FDA-Public Use
  Company Number: 234301

PATIENT
  Age: 64 Year
  Sex: Female

DRUGS (4)
  1. NOVOLOG [Suspect]
     Indication: DIABETES MELLITUS INSULIN-DEPENDENT
     Dosage: SUBCUTANEOUS
     Route: 058
     Dates: start: 20021201, end: 20030401
  2. HUMULIN (INSULIN HUMAN INJECTION, ISOPHANE) [Concomitant]
  3. ACCUPRIL [Concomitant]
  4. COUMADIN [Concomitant]

REACTIONS (4)
  - COMPLETED SUICIDE [None]
  - DEPRESSED MOOD [None]
  - DIABETIC COMA [None]
  - INTENTIONAL OVERDOSE [None]
